FAERS Safety Report 9601758 (Version 2)
Quarter: 2013Q4

REPORT INFORMATION
  Report Type: Report from Study
  Country: ES (occurrence: ES)
  Receive Date: 20131007
  Receipt Date: 20131007
  Transmission Date: 20140711
  Serious: Yes (Death, Hospitalization, Disabling)
  Sender: FDA-Public Use
  Company Number: ES-ROCHE-1152652

PATIENT
  Age: 69 Year
  Sex: Female
  Weight: 62 kg

DRUGS (25)
  1. TRASTUZUMAB EMTANSINE [Suspect]
     Indication: BREAST CANCER METASTATIC
     Route: 042
     Dates: start: 20121008, end: 20121128
  2. CAPECITABINE [Suspect]
     Indication: BREAST CANCER METASTATIC
     Dosage: DAILY
     Route: 048
     Dates: start: 20110204, end: 20120101
  3. LAPATINIB [Suspect]
     Indication: BREAST CANCER METASTATIC
     Route: 048
     Dates: start: 20110204, end: 20120924
  4. RIVOTRIL [Concomitant]
     Indication: ANXIETY
     Route: 065
     Dates: end: 20121208
  5. OMEPRAZOLE [Concomitant]
     Indication: ABDOMINAL PAIN UPPER
     Route: 065
     Dates: start: 20110218, end: 20121208
  6. ANASMA [Concomitant]
     Indication: ASTHMA
     Dosage: 1 PUFF
     Route: 065
     Dates: start: 200910, end: 20121208
  7. TROMALYT [Concomitant]
     Indication: PROPHYLAXIS
     Route: 065
     Dates: start: 20110318, end: 2012
  8. TROMALYT [Concomitant]
     Route: 065
     Dates: start: 20120815, end: 20121208
  9. ZASTEN [Concomitant]
     Indication: RHINITIS ALLERGIC
     Route: 065
     Dates: start: 20120531, end: 20121208
  10. ROBAXISAL [Concomitant]
     Indication: RHINITIS ALLERGIC
     Route: 065
     Dates: start: 20120531, end: 20121208
  11. CAPTOPRIL [Concomitant]
     Indication: HYPERTENSION
     Route: 065
     Dates: start: 20121104, end: 20121208
  12. IBUPROFEN [Concomitant]
     Indication: PAIN PROPHYLAXIS
     Route: 065
     Dates: start: 20121104, end: 20121208
  13. IBUPROFEN [Concomitant]
     Route: 065
     Dates: start: 20121029, end: 20121208
  14. TRAMADOL [Concomitant]
     Indication: PAIN PROPHYLAXIS
     Route: 065
     Dates: start: 20121104, end: 20121208
  15. TRAMADOL [Concomitant]
     Route: 065
     Dates: start: 20121029, end: 20121208
  16. ORFIDAL [Concomitant]
     Indication: PROPHYLAXIS
     Route: 065
     Dates: start: 20121104, end: 20121208
  17. PARACETAMOL [Concomitant]
     Indication: PAIN
     Route: 065
     Dates: start: 20121104, end: 20121208
  18. ZALDIAR [Concomitant]
     Indication: INFLUENZA LIKE ILLNESS
     Route: 065
     Dates: start: 20121008, end: 20121029
  19. SODIUM CHLORIDE [Concomitant]
     Indication: HYPOKALAEMIA
     Route: 065
     Dates: start: 20121202, end: 20121205
  20. MORPHINE HYDROCHLORIDE [Concomitant]
     Indication: PROPHYLAXIS
     Dosage: 10 MG/ML
     Route: 065
     Dates: start: 20121207, end: 20121208
  21. ENOXAPARINA [Concomitant]
     Indication: PROPHYLAXIS
     Route: 065
     Dates: start: 20121206, end: 20121207
  22. MIDAZOLAM MALEATE [Concomitant]
     Indication: PROPHYLAXIS
     Route: 065
     Dates: start: 20121207, end: 20121208
  23. HYDROCORTISONE [Concomitant]
     Indication: PALLIATIVE CARE
     Route: 065
     Dates: start: 20121206, end: 20121207
  24. METHYLPREDNISOLONE [Concomitant]
     Indication: PALLIATIVE CARE
     Route: 065
     Dates: start: 20121202, end: 20121207
  25. CODEISAN (SPAIN) [Concomitant]
     Indication: COUGH
     Route: 065
     Dates: start: 20121202, end: 20121208

REACTIONS (1)
  - Asthenia [Fatal]
